FAERS Safety Report 7055317-1 (Version None)
Quarter: 2010Q4

REPORT INFORMATION
  Report Type: 
  Country: None (occurrence: None)
  Receive Date: 20101021
  Receipt Date: 20101011
  Transmission Date: 20110411
  Serious: Yes (Other)
  Sender: FDA-Public Use
  Company Number: ES-ELI_LILLY_AND_COMPANY-ES201010002274

PATIENT
  Age: 20 Year
  Sex: Male

DRUGS (9)
  1. BYETTA [Suspect]
     Dosage: 5 UG, 2/D
  2. BYETTA [Suspect]
     Dosage: 10 UG, 2/D
  3. REPAGLINIDE [Concomitant]
     Dosage: 1 MG, 3/D
  4. METFORMIN [Concomitant]
     Dosage: 850 MG, 2/D
  5. INSULIN GLARGINE [Concomitant]
     Dosage: 20 U, DAILY (1/D)
  6. ATORVASTATIN [Concomitant]
     Dosage: 10 MG, DAILY (1/D)
  7. FENOFIBRATE [Concomitant]
     Dosage: 145 MG, DAILY (1/D)
  8. CANDESARTAN W/HYDROCHLOROTHIAZIDE [Concomitant]
     Dosage: 1 D/F, DAILY (1/D)
  9. ACETYLSALICYLIC ACID SRT [Concomitant]
     Dosage: 100 MG, DAILY (1/D)

REACTIONS (4)
  - DEHYDRATION [None]
  - NAUSEA [None]
  - RENAL FAILURE ACUTE [None]
  - VOMITING [None]
